FAERS Safety Report 9918290 (Version 1)
Quarter: 2014Q1

REPORT INFORMATION
  Report Type: Report from Study
  Country: US (occurrence: US)
  Receive Date: 20140224
  Receipt Date: 20140224
  Transmission Date: 20141002
  Serious: Yes (Other)
  Sender: FDA-Public Use
  Company Number: US-ROCHE-1350471

PATIENT
  Sex: Male

DRUGS (3)
  1. AVASTIN [Suspect]
     Indication: COLORECTAL CANCER
     Route: 042
     Dates: start: 20130612, end: 20131009
  2. AVASTIN [Suspect]
     Dosage: RESTARTED
     Route: 042
  3. COUMADIN [Concomitant]

REACTIONS (2)
  - Intestinal obstruction [Unknown]
  - Colostomy infection [Unknown]
